FAERS Safety Report 6843430-0 (Version None)
Quarter: 2010Q3

REPORT INFORMATION
  Report Type: 
  Country: None (occurrence: None)
  Receive Date: 20100715
  Receipt Date: 20100712
  Transmission Date: 20110219
  Serious: Yes (Death)
  Sender: FDA-Public Use
  Company Number: CN-ASTRAZENECA-2010SE31369

PATIENT
  Age: 65 Year
  Sex: Male

DRUGS (4)
  1. IRESSA [Suspect]
     Indication: NON-SMALL CELL LUNG CANCER
     Route: 048
  2. PLENDIL [Concomitant]
  3. LOTENSIN [Concomitant]
  4. PROSCAR [Concomitant]

REACTIONS (4)
  - INTERSTITIAL LUNG DISEASE [None]
  - LIVER INJURY [None]
  - LUNG INFECTION [None]
  - MULTI-ORGAN FAILURE [None]
